FAERS Safety Report 7562909-X (Version None)
Quarter: 2011Q2

REPORT INFORMATION
  Report Type: 
  Country: None (occurrence: None)
  Receive Date: 20110622
  Receipt Date: 20110607
  Transmission Date: 20111010
  Serious: Yes (Hospitalization)
  Sender: FDA-Public Use
  Company Number: US-ROCHE-783317

PATIENT
  Sex: Female

DRUGS (3)
  1. CISPLATIN [Suspect]
     Route: 033
     Dates: start: 20101203
  2. BEVACIZUMAB [Suspect]
     Route: 042
     Dates: start: 20101203
  3. PACLITAXEL [Suspect]
     Dosage: 135 MG/M2 IV OVER 3 HRS ON DAY 1
     Route: 042
     Dates: start: 20101203

REACTIONS (6)
  - HAEMOGLOBIN DECREASED [None]
  - HYPERTENSION [None]
  - THROMBOSIS [None]
  - VOMITING [None]
  - NAUSEA [None]
  - COLONIC OBSTRUCTION [None]
